FAERS Safety Report 20120182 (Version 1)
Quarter: 2021Q4

REPORT INFORMATION
  Report Type: Spontaneous
  Country: US (occurrence: US)
  Receive Date: 20211126
  Receipt Date: 20211126
  Transmission Date: 20220303
  Serious: No
  Sender: FDA-Public Use
  Company Number: US-JNJFOC-20211137103

PATIENT
  Sex: Female

DRUGS (1)
  1. MENS ROGAINE EXTRA STRENGTH [Suspect]
     Active Substance: MINOXIDIL
     Indication: Alopecia
     Dosage: ONCE DAILY
     Route: 061

REACTIONS (5)
  - Application site pain [Unknown]
  - Application site pruritus [Unknown]
  - Application site exfoliation [Unknown]
  - Product use issue [Unknown]
  - Off label use [Unknown]
